FAERS Safety Report 9218305 (Version 1)
Quarter: 2013Q2

REPORT INFORMATION
  Report Type: Spontaneous
  Country: FR (occurrence: FR)
  Receive Date: 20130409
  Receipt Date: 20130409
  Transmission Date: 20140414
  Serious: Yes (Death, Hospitalization)
  Sender: FDA-Public Use
  Company Number: FR-009507513-0411FRA00084

PATIENT
  Age: 73 Year
  Sex: Female

DRUGS (12)
  1. SINGULAIR [Suspect]
     Indication: BRONCHITIS CHRONIC
     Dosage: UNK
     Route: 048
     Dates: end: 20040930
  2. DEROXAT [Suspect]
     Indication: DEPRESSION
     Dosage: UNK
     Route: 048
     Dates: end: 20040930
  3. PLAVIX [Suspect]
     Route: 048
     Dates: end: 20040926
  4. SPIRONOLACTONE [Concomitant]
     Indication: HYPERTENSION
     Dosage: UNK
     Route: 048
     Dates: end: 20040930
  5. URAPIDIL [Concomitant]
     Indication: HYPERTENSION
     Dosage: UNK
     Route: 048
     Dates: end: 20040930
  6. VERAPAMIL [Concomitant]
     Indication: HYPERTENSION
     Dosage: UNK
     Route: 048
     Dates: end: 20040930
  7. ALLOPURINOL [Concomitant]
     Dosage: UNK
     Route: 048
     Dates: end: 20040930
  8. OROCAL D3 [Concomitant]
     Indication: OSTEOPOROSIS
     Dosage: UNK
     Route: 048
     Dates: end: 20040930
  9. PROPOFAN (ACETAMINOPHEN (+) CAFFEINE (+) PROPOXYPHENE HYDROCHLORIDE) [Concomitant]
     Indication: OSTEOARTHRITIS
     Dosage: UNK
     Route: 048
     Dates: end: 20040930
  10. PROPOFAN (ACETAMINOPHEN (+) CAFFEINE (+) PROPOXYPHENE HYDROCHLORIDE) [Concomitant]
     Indication: OSTEOPOROSIS
  11. VOGALENE [Concomitant]
     Dosage: UNK
     Route: 065
     Dates: end: 20040930
  12. SYMBICORT [Concomitant]
     Indication: BRONCHITIS CHRONIC
     Dosage: UNK
     Route: 055
     Dates: end: 20040930

REACTIONS (3)
  - Cerebral haematoma [Fatal]
  - Cerebral haematoma [Recovering/Resolving]
  - Cerebral haematoma [Recovering/Resolving]
